FAERS Safety Report 8415927-3 (Version None)
Quarter: 2012Q2

REPORT INFORMATION
  Report Type: 
  Country: None (occurrence: None)
  Receive Date: 20120606
  Receipt Date: 20120528
  Transmission Date: 20120825
  Serious: Yes (Death, Life-Threatening)
  Sender: FDA-Public Use
  Company Number: JP-SANOFI-AVENTIS-2011SA025317

PATIENT
  Age: 85 Year
  Sex: Female
  Weight: 47 kg

DRUGS (8)
  1. ROHYPNOL [Concomitant]
     Route: 048
     Dates: start: 20100319, end: 20110114
  2. ASPIRIN [Suspect]
     Route: 048
     Dates: end: 20100729
  3. AMLODIPINE [Concomitant]
     Indication: HYPERTENSION
     Route: 048
     Dates: start: 20110101, end: 20110114
  4. ATORVASTATIN CALCIUM [Concomitant]
     Route: 048
     Dates: end: 20110114
  5. CLOPIDOGREL BISULFATE [Suspect]
     Route: 048
     Dates: start: 20100304, end: 20100729
  6. MYONAL [Concomitant]
     Route: 048
     Dates: end: 20110114
  7. LANSOPRAZOLE [Concomitant]
     Route: 048
     Dates: start: 20100319, end: 20110114
  8. SERMION [Concomitant]
     Route: 048
     Dates: end: 20110114

REACTIONS (3)
  - MELAENA [None]
  - COLON CANCER [None]
  - LARGE INTESTINAL HAEMORRHAGE [None]
